FAERS Safety Report 19610960 (Version 1)
Quarter: 2021Q3

REPORT INFORMATION
  Report Type: Spontaneous
  Country: CN (occurrence: CN)
  Receive Date: 20210726
  Receipt Date: 20210726
  Transmission Date: 20211014
  Serious: Yes (Life-Threatening, Hospitalization)
  Sender: FDA-Public Use
  Company Number: CN-ELI_LILLY_AND_COMPANY-CN202107009531

PATIENT
  Age: 60 Year
  Sex: Female
  Weight: 42 kg

DRUGS (4)
  1. ALIMTA [Suspect]
     Active Substance: PEMETREXED DISODIUM
     Indication: LUNG NEOPLASM MALIGNANT
     Dosage: 0.6 G, OTHER (ONCE PER 21 DAYS)
     Route: 041
     Dates: start: 20210610, end: 20210610
  2. NORMAL SALINE [Concomitant]
     Active Substance: SODIUM CHLORIDE
     Dosage: 100 ML, OTHER (EVERY 21 DAYS)
     Route: 041
     Dates: start: 20210610, end: 20210610
  3. CISPLATIN. [Suspect]
     Active Substance: CISPLATIN
     Indication: LUNG NEOPLASM MALIGNANT
     Dosage: 60 MG, OTHER (ONCE EVERY 21 DAYS)
     Route: 041
     Dates: start: 20210610, end: 20210610
  4. NORMAL SALINE [Concomitant]
     Active Substance: SODIUM CHLORIDE
     Indication: MEDICATION DILUTION
     Dosage: 100 ML, OTHER (EVERY 21 DAYS)
     Route: 041
     Dates: start: 20210610, end: 20210610

REACTIONS (2)
  - Myelosuppression [Not Recovered/Not Resolved]
  - Agranulocytosis [Not Recovered/Not Resolved]

NARRATIVE: CASE EVENT DATE: 20210617
